FAERS Safety Report 7329788-7 (Version None)
Quarter: 2011Q1

REPORT INFORMATION
  Report Type: 
  Country: None (occurrence: None)
  Receive Date: 20110303
  Receipt Date: 20110228
  Transmission Date: 20110831
  Serious: Yes (Other)
  Sender: FDA-Public Use
  Company Number: AU-PFIZER INC-2011043743

PATIENT

DRUGS (1)
  1. ZOLOFT [Suspect]
     Route: 064

REACTIONS (5)
  - DRUG WITHDRAWAL SYNDROME NEONATAL [None]
  - DRUG EXPOSURE DURING PREGNANCY [None]
  - IRRITABILITY [None]
  - DECREASED APPETITE [None]
  - SLEEP DISORDER [None]
